FAERS Safety Report 9729441 (Version 2)
Quarter: 2013Q4

REPORT INFORMATION
  Report Type: Spontaneous
  Country: US (occurrence: US)
  Receive Date: 20131204
  Receipt Date: 20131204
  Transmission Date: 20140711
  Serious: No
  Sender: FDA-Public Use
  Company Number: US-GILEAD-2009-0021194

PATIENT
  Age: 76 Year
  Sex: Female
  Weight: 92.99 kg

DRUGS (14)
  1. LETAIRIS [Suspect]
     Indication: PULMONARY ARTERIAL HYPERTENSION
     Route: 048
     Dates: start: 20080412
  2. LOVASTATIN [Concomitant]
  3. LISINOPRIL [Concomitant]
  4. HYDROCHLOROTHIAZIDE [Concomitant]
  5. BENICAR [Concomitant]
  6. ASPIRIN [Concomitant]
  7. FUROSEMIDE [Concomitant]
  8. ADVAIR [Concomitant]
  9. PROAIR [Concomitant]
  10. PROPOXYPHENE [Concomitant]
  11. HYDROXYZINE [Concomitant]
  12. ETODOLAC [Concomitant]
  13. METFORMIN [Concomitant]
  14. KIDNEX [Concomitant]

REACTIONS (5)
  - Liver function test abnormal [Unknown]
  - Hyperkalaemia [Unknown]
  - Musculoskeletal disorder [Unknown]
  - Pain in extremity [Unknown]
  - Oedema peripheral [Not Recovered/Not Resolved]
